FAERS Safety Report 5605336-4 (Version None)
Quarter: 2008Q1

REPORT INFORMATION
  Report Type: 
  Country: None (occurrence: None)
  Receive Date: 20080129
  Receipt Date: 20080116
  Transmission Date: 20080703
  Serious: Yes (Other)
  Sender: FDA-Public Use
  Company Number: US-PFIZER INC-2008006498

PATIENT
  Sex: Male
  Weight: 112.5 kg

DRUGS (3)
  1. CHANTIX [Suspect]
     Indication: EX-SMOKER
  2. ACYCLOVIR [Concomitant]
  3. ALL OTHER THERAPEUTIC PRODUCTS [Concomitant]

REACTIONS (2)
  - DRUG ADMINISTRATION ERROR [None]
  - HERPES ZOSTER OPHTHALMIC [None]
